FAERS Safety Report 26072818 (Version 2)
Quarter: 2025Q4

REPORT INFORMATION
  Report Type: Spontaneous
  Country: JP (occurrence: JP)
  Receive Date: 20251121
  Receipt Date: 20251124
  Transmission Date: 20260118
  Serious: Yes (Hospitalization, Other)
  Sender: MERCK SHARP & DOHME LLC
  Company Number: JP-009507513-2351248

PATIENT
  Age: 30 Year
  Sex: Female

DRUGS (7)
  1. KEYTRUDA [Suspect]
     Active Substance: PEMBROLIZUMAB
     Indication: Hereditary leiomyomatosis renal cell carcinoma
     Dates: start: 202401
  2. BELZUTIFAN [Suspect]
     Active Substance: BELZUTIFAN
     Indication: Hereditary leiomyomatosis renal cell carcinoma
     Route: 065
     Dates: start: 202510
  3. LENVATINIB [Suspect]
     Active Substance: LENVATINIB
     Indication: Hereditary leiomyomatosis renal cell carcinoma
     Dates: start: 202401, end: 202408
  4. LENVATINIB [Suspect]
     Active Substance: LENVATINIB
     Indication: Hereditary leiomyomatosis renal cell carcinoma
     Dates: start: 202408
  5. LENVATINIB [Suspect]
     Active Substance: LENVATINIB
     Indication: Hereditary leiomyomatosis renal cell carcinoma
     Dates: start: 202409
  6. DENOSUMAB [Suspect]
     Active Substance: DENOSUMAB
     Indication: Hereditary leiomyomatosis renal cell carcinoma
     Dates: start: 202401
  7. CABOZANTINIB [Suspect]
     Active Substance: CABOZANTINIB
     Indication: Hereditary leiomyomatosis renal cell carcinoma
     Dates: start: 202501

REACTIONS (12)
  - Malignant neoplasm progression [Unknown]
  - Decreased appetite [Unknown]
  - Therapy partial responder [Unknown]
  - Abdominal pain upper [Unknown]
  - Proteinuria [Unknown]
  - Stomatitis [Unknown]
  - Product use issue [Unknown]
  - Back pain [Unknown]
  - Nausea [Unknown]
  - Diarrhoea [Unknown]
  - Product use in unapproved indication [Unknown]
  - Radiotherapy [Unknown]

NARRATIVE: CASE EVENT DATE: 20240101
